FAERS Safety Report 20545021 (Version 1)
Quarter: 2022Q1

REPORT INFORMATION
  Report Type: Spontaneous
  Country: US (occurrence: US)
  Receive Date: 20220303
  Receipt Date: 20220303
  Transmission Date: 20220423
  Serious: No
  Sender: FDA-Public Use
  Company Number: US-ALLERGAN-2130936US

PATIENT
  Sex: Female

DRUGS (1)
  1. RESTASIS [Suspect]
     Active Substance: CYCLOSPORINE
     Indication: Dry eye
     Dosage: UNK

REACTIONS (5)
  - Wrong technique in product usage process [Unknown]
  - Eyelid disorder [Recovered/Resolved]
  - Blepharitis [Recovered/Resolved]
  - Erythema of eyelid [Recovered/Resolved]
  - Ocular hyperaemia [Recovered/Resolved]
